FAERS Safety Report 6213835-X (Version None)
Quarter: 2009Q2

REPORT INFORMATION
  Report Type: 
  Country: None (occurrence: None)
  Receive Date: 20090604
  Receipt Date: 20090601
  Transmission Date: 20091009
  Serious: Yes (Other)
  Sender: FDA-Public Use
  Company Number: US-ASTRAZENECA-2009UW13919

PATIENT
  Age: 42 Year
  Sex: Female
  Weight: 101.2 kg

DRUGS (4)
  1. SEROQUEL [Suspect]
     Route: 048
  2. CLONIDINE [Concomitant]
     Route: 048
  3. STRATTERA [Concomitant]
     Route: 048
  4. WELLBUTRIN [Concomitant]
     Route: 048

REACTIONS (2)
  - MYOCARDIAL INFARCTION [None]
  - VISION BLURRED [None]
